FAERS Safety Report 23112016 (Version 1)
Quarter: 2023Q4

REPORT INFORMATION
  Report Type: Spontaneous
  Country: JP (occurrence: JP)
  Receive Date: 20231026
  Receipt Date: 20231026
  Transmission Date: 20240109
  Serious: Yes (Hospitalization)
  Sender: FDA-Public Use
  Company Number: JP-Eisai-EC-2023-151401

PATIENT
  Sex: Female

DRUGS (7)
  1. LENVIMA [Suspect]
     Active Substance: LENVATINIB
     Indication: Anaplastic thyroid cancer
     Dosage: WEEK-ENDS OFF METHOD
     Route: 048
     Dates: start: 20201013, end: 20201028
  2. LENVIMA [Suspect]
     Active Substance: LENVATINIB
     Dosage: WEEK-ENDS OFF METHOD
     Route: 048
     Dates: start: 20201029, end: 20201111
  3. LENVIMA [Suspect]
     Active Substance: LENVATINIB
     Dosage: WEEK-ENDS OFF METHOD
     Route: 048
     Dates: start: 20201112
  4. LENVIMA [Suspect]
     Active Substance: LENVATINIB
     Dosage: WEEK-ENDS OFF METHOD?ORALLY ADMINISTERED MONDAY-FRIDAY, DISCONTINUED ON WEEKEND
     Route: 048
     Dates: start: 20201130, end: 20210120
  5. LENVIMA [Suspect]
     Active Substance: LENVATINIB
     Dosage: WEEK-ENDS OFF METHOD?ORALLY ADMINISTERED MONDAY-FRIDAY, DISCONTINUED ON WEEKEND
     Route: 048
     Dates: start: 20210121, end: 20210323
  6. LENVIMA [Suspect]
     Active Substance: LENVATINIB
     Dosage: WEEK-ENDS OFF METHOD?ORALLY ADMINISTERED MONDAY-FRIDAY, DISCONTINUED ON WEEKEND
     Route: 048
     Dates: start: 20210324, end: 20210405
  7. LENVIMA [Suspect]
     Active Substance: LENVATINIB
     Dosage: ORALLY ADMINISTERED MONDAY-FRIDAY, DISCONTINUED ON WEEKEND
     Route: 048
     Dates: start: 20210406, end: 20210506

REACTIONS (1)
  - Pneumonia [Unknown]

NARRATIVE: CASE EVENT DATE: 20210101
